FAERS Safety Report 7653830-7 (Version None)
Quarter: 2011Q3

REPORT INFORMATION
  Report Type: 
  Country: None (occurrence: None)
  Receive Date: 20110803
  Receipt Date: 20110801
  Transmission Date: 20111222
  Serious: Yes (Hospitalization)
  Sender: FDA-Public Use
  Company Number: US-MYLANLABS-2011S1015480

PATIENT
  Age: 99 Year
  Sex: Male

DRUGS (4)
  1. FEXOFENADINE HYDROCHLORIDE [Suspect]
     Indication: MULTIPLE ALLERGIES
     Route: 048
  2. COZAAR [Concomitant]
  3. PRILOSEC [Concomitant]
  4. PREDNISONE [Concomitant]
     Dates: start: 20090101

REACTIONS (7)
  - ORAL FUNGAL INFECTION [None]
  - FALL [None]
  - ASTHENIA [None]
  - DEHYDRATION [None]
  - LACERATION [None]
  - FATIGUE [None]
  - PNEUMONIA [None]
